FAERS Safety Report 9016112 (Version 3)
Quarter: 2013Q1

REPORT INFORMATION
  Report Type: Spontaneous
  Country: US (occurrence: US)
  Receive Date: 20130116
  Receipt Date: 20130131
  Transmission Date: 20140127
  Serious: Yes (Hospitalization, Other)
  Sender: FDA-Public Use
  Company Number: US-PFIZER INC-2013020199

PATIENT
  Age: 94 Year
  Sex: Female
  Weight: 48 kg

DRUGS (4)
  1. IBUPROFEN [Suspect]
     Indication: PRODUCT USED FOR UNKNOWN INDICATION
     Dosage: EVERY 6-8 HOURS AS NEEDED
     Route: 065
  2. XARELTO [Suspect]
     Indication: ATRIAL FIBRILLATION
     Dosage: 20 MG, UNK
     Route: 048
     Dates: start: 201209, end: 20121218
  3. XARELTO [Suspect]
     Indication: PROPHYLAXIS
  4. ALEVE [Suspect]
     Indication: PRODUCT USED FOR UNKNOWN INDICATION
     Dosage: EVERY 8 HOURS AS NEEDED
     Route: 065

REACTIONS (4)
  - Gastrointestinal haemorrhage [Recovering/Resolving]
  - Hepatic enzyme increased [Recovering/Resolving]
  - Renal failure acute [Unknown]
  - International normalised ratio increased [Unknown]
